FAERS Safety Report 17850163 (Version 3)
Quarter: 2020Q3

REPORT INFORMATION
  Report Type: Report from Study
  Country: US (occurrence: US)
  Receive Date: 20200602
  Receipt Date: 20200707
  Transmission Date: 20201103
  Serious: Yes (Hospitalization)
  Sender: FDA-Public Use
  Company Number: US-HORIZON-TEP-0240-2020

PATIENT
  Age: 73 Year
  Sex: Male

DRUGS (1)
  1. TEPEZZA [Suspect]
     Active Substance: TEPROTUMUMAB-TRBW
     Indication: BASEDOW^S DISEASE
     Dosage: 500MG EVERY THREE WEEKS
     Route: 042
     Dates: start: 202005

REACTIONS (8)
  - Chills [Recovering/Resolving]
  - Somnolence [Recovering/Resolving]
  - Blood glucose increased [Recovering/Resolving]
  - Fatigue [Recovering/Resolving]
  - Escherichia urinary tract infection [Recovering/Resolving]
  - Feeling abnormal [Recovering/Resolving]
  - Glycosylated haemoglobin increased [Unknown]
  - Lethargy [Recovering/Resolving]

NARRATIVE: CASE EVENT DATE: 202005
